FAERS Safety Report 6265031-8 (Version None)
Quarter: 2009Q3

REPORT INFORMATION
  Report Type: 
  Country: None (occurrence: None)
  Receive Date: 20090713
  Receipt Date: 20090706
  Transmission Date: 20100115
  Serious: Yes (Hospitalization)
  Sender: FDA-Public Use
  Company Number: US-B.I. PHARMACEUTICALS,INC./RIDGEFIELD-2009-BP-08085BP

PATIENT

DRUGS (1)
  1. MICARDIS [Suspect]

REACTIONS (4)
  - DIARRHOEA [None]
  - GASTROENTERITIS VIRAL [None]
  - HYPOVOLAEMIA [None]
  - RENAL FAILURE ACUTE [None]
